FAERS Safety Report 5349658-3 (Version None)
Quarter: 2007Q2

REPORT INFORMATION
  Report Type: 
  Country: None (occurrence: None)
  Receive Date: 20070607
  Receipt Date: 20070529
  Transmission Date: 20071010
  Serious: Yes (Other)
  Sender: FDA-Public Use
  Company Number: US-ASTRAZENECA-2007UW13144

PATIENT
  Age: 70 Year
  Sex: Female
  Weight: 83.9 kg

DRUGS (8)
  1. NEXIUM [Suspect]
     Indication: GASTROOESOPHAGEAL REFLUX DISEASE
     Route: 048
     Dates: start: 20070501
  2. PLAVIX [Concomitant]
  3. HYZAAR [Concomitant]
  4. VERAPAMIL [Concomitant]
  5. GLUCOPHAGE [Concomitant]
  6. OMACOR [Concomitant]
  7. XANAX [Concomitant]
  8. TYLENOL [Concomitant]

REACTIONS (3)
  - ANAPHYLACTIC REACTION [None]
  - BLOOD GLUCOSE INCREASED [None]
  - BLOOD PRESSURE INCREASED [None]
